FAERS Safety Report 6327940-0 (Version None)
Quarter: 2009Q3

REPORT INFORMATION
  Report Type: 
  Country: None (occurrence: None)
  Receive Date: 20090825
  Receipt Date: 20080821
  Transmission Date: 20100115
  Serious: No
  Sender: FDA-Public Use
  Company Number: US-ABBOTT-08P-163-0472093-00

PATIENT
  Sex: Female
  Weight: 60.836 kg

DRUGS (4)
  1. SYNTHROID [Suspect]
     Indication: HYPOTHYROIDISM
     Route: 048
     Dates: start: 20050101
  2. SYNTHROID [Suspect]
     Route: 048
     Dates: start: 20070101
  3. SYNTHROID [Suspect]
     Route: 048
     Dates: start: 20080201
  4. LITHIUM CARBONATE [Concomitant]
     Indication: BIPOLAR DISORDER
     Route: 048
     Dates: start: 19780101

REACTIONS (2)
  - FATIGUE [None]
  - OSTEOPOROSIS [None]
